FAERS Safety Report 21769865 (Version 4)
Quarter: 2023Q1

REPORT INFORMATION
  Report Type: Spontaneous
  Country: CO (occurrence: CO)
  Receive Date: 20221223
  Receipt Date: 20230119
  Transmission Date: 20230417
  Serious: Yes (Other)
  Sender: FDA-Public Use
  Company Number: CO-PFIZER INC-202201368904

PATIENT
  Age: 44 Year
  Sex: Male

DRUGS (1)
  1. ENBREL [Suspect]
     Active Substance: ETANERCEPT
     Indication: Product used for unknown indication
     Dosage: UNK
     Route: 065
     Dates: start: 202208

REACTIONS (5)
  - Muscle spasms [Unknown]
  - Injection site pain [Unknown]
  - Injection site oedema [Unknown]
  - Device difficult to use [Unknown]
  - Device leakage [Unknown]
